FAERS Safety Report 8384777-9 (Version None)
Quarter: 2012Q2

REPORT INFORMATION
  Report Type: 
  Country: None (occurrence: None)
  Receive Date: 20120524
  Receipt Date: 20120514
  Transmission Date: 20120825
  Serious: No
  Sender: FDA-Public Use
  Company Number: US-ASTRAZENECA-2012SE10390

PATIENT
  Age: 16 Year
  Sex: Female
  Weight: 64.4 kg

DRUGS (1)
  1. SYMBICORT [Suspect]
     Indication: ASTHMA
     Dosage: UNKNOWN STRENGTH AND FREQUENCY
     Route: 055

REACTIONS (2)
  - PULMONARY FUNCTION TEST ABNORMAL [None]
  - PULMONARY FUNCTION TEST DECREASED [None]
